FAERS Safety Report 21769000 (Version 1)
Quarter: 2022Q4

REPORT INFORMATION
  Report Type: Spontaneous
  Country: ES (occurrence: ES)
  Receive Date: 20221222
  Receipt Date: 20221222
  Transmission Date: 20230112
  Serious: Yes (Life-Threatening, Other)
  Sender: FDA-Public Use
  Company Number: ES-MLMSERVICE-20221212-3976114-1

PATIENT
  Age: 74 Year
  Sex: Female

DRUGS (4)
  1. TRAMADOL HYDROCHLORIDE [Interacting]
     Active Substance: TRAMADOL HYDROCHLORIDE
     Indication: Back pain
     Dosage: UNK
     Route: 065
  2. LITHIUM [Interacting]
     Active Substance: LITHIUM
     Indication: Major depression
     Dosage: 600 MILLIGRAM
     Route: 065
  3. VENLAFAXINE [Interacting]
     Active Substance: VENLAFAXINE HYDROCHLORIDE
     Indication: Major depression
     Dosage: 300 MILLIGRAM
     Route: 065
  4. QUETIAPINE [Suspect]
     Active Substance: QUETIAPINE
     Indication: Major depression
     Dosage: 50 MILLIGRAM
     Route: 065

REACTIONS (6)
  - Blood creatine phosphokinase increased [Unknown]
  - Alanine aminotransferase increased [Unknown]
  - Serotonin syndrome [Unknown]
  - Aspartate aminotransferase increased [Unknown]
  - Drug interaction [Unknown]
  - Drug interaction [Unknown]
